FAERS Safety Report 5068610-9 (Version None)
Quarter: 2006Q3

REPORT INFORMATION
  Report Type: 
  Country: None (occurrence: None)
  Receive Date: 20060802
  Receipt Date: 20060104
  Transmission Date: 20061208
  Serious: No
  Sender: FDA-Public Use
  Company Number: US-BRISTOL-MYERS SQUIBB COMPANY-13236252

PATIENT
  Age: 85 Year
  Sex: Male

DRUGS (6)
  1. COUMADIN [Suspect]
     Indication: ATRIAL FIBRILLATION
     Dosage: DURATION: 20 YEARS
  2. TYLENOL EXTENDED RELIEF [Interacting]
     Indication: PAIN
     Route: 048
     Dates: start: 20051028, end: 20051120
  3. ASPIRIN [Concomitant]
     Route: 048
  4. DIGOXIN [Concomitant]
  5. PROCARDIA [Concomitant]
  6. ATENOLOL [Concomitant]

REACTIONS (2)
  - DRUG INTERACTION [None]
  - LABORATORY TEST ABNORMAL [None]
